FAERS Safety Report 7248854-8 (Version None)
Quarter: 2011Q1

REPORT INFORMATION
  Report Type: 
  Country: None (occurrence: None)
  Receive Date: 20110128
  Receipt Date: 20100405
  Transmission Date: 20110831
  Serious: Yes (Other)
  Sender: FDA-Public Use
  Company Number: US-BAYER-201013622NA

PATIENT
  Sex: Female
  Weight: 58.05 kg

DRUGS (51)
  1. GADOLINIUM IN UNSPECIFIED DRUG [Suspect]
     Indication: NUCLEAR MAGNETIC RESONANCE IMAGING
     Dosage: UNK
     Dates: start: 19990615, end: 19990615
  2. GADOLINIUM IN UNSPECIFIED DRUG [Suspect]
     Dosage: UNK
     Dates: start: 20011108, end: 20011108
  3. MAGNEVIST [Suspect]
     Dosage: 12 ML, ONCE
     Route: 042
     Dates: start: 20020326
  4. MAGNEVIST [Suspect]
     Dosage: 20 ML, ONCE
     Route: 042
     Dates: start: 20040102, end: 20040102
  5. MAGNEVIST [Suspect]
     Dosage: 17 ML, ONCE
     Route: 042
     Dates: start: 20061211
  6. GADOLINIUM IN UNSPECIFIED DRUG [Suspect]
     Indication: NUCLEAR MAGNETIC RESONANCE IMAGING BRAIN
     Dosage: UNK
     Dates: start: 19970718, end: 19970718
  7. GADOLINIUM IN UNSPECIFIED DRUG [Suspect]
     Dosage: UNK
     Route: 042
     Dates: start: 20050629, end: 20050629
  8. GADOLINIUM IN UNSPECIFIED DRUG [Suspect]
     Dosage: UNK
     Dates: start: 20061211, end: 20061211
  9. OMNISCAN [Suspect]
     Indication: NUCLEAR MAGNETIC RESONANCE IMAGING BRAIN
     Dosage: 10 ML, ONCE
     Dates: start: 19980601, end: 19980601
  10. OPTIMARK [Suspect]
     Indication: NUCLEAR MAGNETIC RESONANCE IMAGING
  11. MULTIHANCE [Suspect]
     Indication: NUCLEAR MAGNETIC RESONANCE IMAGING
     Dosage: 7 ML, UNK
     Route: 042
     Dates: start: 20080111, end: 20080111
  12. PROHANCE [Suspect]
     Indication: NUCLEAR MAGNETIC RESONANCE IMAGING
  13. UNCODEABLE ^UNCLASSIFIABLE^ [Concomitant]
     Dosage: 10 MG, QD
  14. ZOFRAN [Concomitant]
  15. OXYCONTIN [Concomitant]
     Dosage: 20 MG, BID
  16. LIPITOR [Concomitant]
     Dosage: 10 MG, QD
  17. MAGNEVIST [Suspect]
     Indication: NUCLEAR MAGNETIC RESONANCE IMAGING BRAIN
     Dosage: 14 ML, ONCE
     Route: 042
     Dates: start: 20010103, end: 20010103
  18. RENAGEL [Concomitant]
     Dosage: 403 UNK, UNK
     Dates: start: 19990101
  19. PREDNISONE [Concomitant]
     Dosage: 10 MG, QD
  20. MAGNEVIST [Suspect]
     Indication: NUCLEAR MAGNETIC RESONANCE IMAGING
     Dosage: 12 ML, ONCE
     Route: 042
     Dates: start: 20020318, end: 20020318
  21. GADOLINIUM IN UNSPECIFIED DRUG [Suspect]
     Dosage: UNK
     Dates: start: 20000323, end: 20000323
  22. GADOLINIUM IN UNSPECIFIED DRUG [Suspect]
     Dosage: UNK
     Dates: start: 20010305, end: 20010305
  23. GADOLINIUM IN UNSPECIFIED DRUG [Suspect]
     Dosage: UNK
     Dates: start: 20030813, end: 20030813
  24. WARFARIN SODIUM [Concomitant]
     Dosage: 5 MG TUES/THURS/SAT/SUN;7.5 MG MON/WED/FRI
     Route: 048
     Dates: start: 19990101
  25. NEPHROCAPS [FOLIC ACID,VITAMINS NOS] [Concomitant]
     Dosage: 1 MG, UNK
     Route: 048
     Dates: start: 20090101
  26. DILANTIN [Concomitant]
     Dosage: 200 MG, QD
  27. THALOMID [Concomitant]
  28. MAGNEVIST [Suspect]
     Dosage: ^14 ML AND 16 ML^
     Route: 042
     Dates: start: 20051215, end: 20051215
  29. GADOLINIUM IN UNSPECIFIED DRUG [Suspect]
     Dosage: 11 ML, ONCE
     Dates: start: 20020910, end: 20020910
  30. PROCRIT [Concomitant]
     Dosage: 5000 U, UNK
     Dates: start: 19990101
  31. METOPROLOL [Concomitant]
     Dosage: 50 MG, BID
     Dates: start: 20090101
  32. CHLORTHALIDONE [Concomitant]
  33. NEURONTIN [Concomitant]
     Dosage: 300 MG, TID
  34. SYNTHROID [Concomitant]
     Dosage: 125 ?G, QD
  35. GADOLINIUM IN UNSPECIFIED DRUG [Suspect]
     Dosage: UNK
     Dates: start: 20020423, end: 20020423
  36. RANITIDINE [Concomitant]
     Dosage: 300 MG, BID
  37. PAXIL [Concomitant]
     Dosage: 20 MG, QD
  38. AMITRIPTYLINE HCL [Concomitant]
     Dosage: 50 MG, QD
  39. MAGNEVIST [Suspect]
     Dosage: 20 ML, ONCE
     Route: 042
     Dates: start: 20021230, end: 20021230
  40. GADOLINIUM IN UNSPECIFIED DRUG [Suspect]
     Indication: HAEMORRHAGE INTRACRANIAL
     Dosage: UNK
     Dates: start: 20000830, end: 20000830
  41. GADOLINIUM IN UNSPECIFIED DRUG [Suspect]
     Indication: ANGIOGRAM
     Dosage: UNK
     Dates: start: 20001221, end: 20001221
  42. GADOLINIUM IN UNSPECIFIED DRUG [Suspect]
     Dosage: 20 ML, ONCE
     Dates: start: 20041203, end: 20041203
  43. MULTIHANCE [Suspect]
     Indication: NUCLEAR MAGNETIC RESONANCE IMAGING BRAIN
     Dosage: 8 ML, ONCE
     Route: 042
     Dates: start: 20080103, end: 20080103
  44. MULTIHANCE [Suspect]
     Dosage: ^17^
     Route: 042
     Dates: start: 20080331, end: 20080331
  45. CLARITIN [Concomitant]
  46. CALCITRIOL [Concomitant]
     Dosage: .25 ?G, QD
  47. LASIX [Concomitant]
  48. GADOLINIUM IN UNSPECIFIED DRUG [Suspect]
     Dosage: UNK
     Dates: start: 19990915, end: 19990915
  49. GADOLINIUM IN UNSPECIFIED DRUG [Suspect]
     Dosage: UNK
     Dates: start: 20080325, end: 20080325
  50. ZETIA [Concomitant]
     Dosage: 10 MG, QD
  51. ATIVAN [Concomitant]
     Dosage: 1 MG AS NEEDED

REACTIONS (13)
  - PRURITUS [None]
  - HYPOAESTHESIA [None]
  - SKIN INDURATION [None]
  - SKIN FIBROSIS [None]
  - MUSCLE CONTRACTURE [None]
  - BURNING SENSATION [None]
  - NEPHROGENIC SYSTEMIC FIBROSIS [None]
  - PAIN [None]
  - PAIN IN EXTREMITY [None]
  - MOBILITY DECREASED [None]
  - SKIN DISORDER [None]
  - GAIT DISTURBANCE [None]
  - OEDEMA PERIPHERAL [None]
